FAERS Safety Report 8174464-4 (Version None)
Quarter: 2012Q1

REPORT INFORMATION
  Report Type: 
  Country: None (occurrence: None)
  Receive Date: 20120229
  Receipt Date: 20120220
  Transmission Date: 20120608
  Serious: Yes (Hospitalization)
  Sender: FDA-Public Use
  Company Number: US-ASTRAZENECA-2011SE33378

PATIENT
  Age: 66 Year
  Sex: Male
  Weight: 96.2 kg

DRUGS (2)
  1. NEXIUM [Suspect]
     Route: 048
  2. ANTIBIOTIC [Suspect]
     Route: 065

REACTIONS (7)
  - BLOOD POTASSIUM DECREASED [None]
  - CLOSTRIDIAL INFECTION [None]
  - DEHYDRATION [None]
  - BLOOD MAGNESIUM DECREASED [None]
  - PNEUMONIA [None]
  - ASTHENIA [None]
  - HYPOACUSIS [None]
